FAERS Safety Report 7237157-3 (Version None)
Quarter: 2011Q1

REPORT INFORMATION
  Report Type: 
  Country: None (occurrence: None)
  Receive Date: 20110121
  Receipt Date: 20110107
  Transmission Date: 20110831
  Serious: Yes (Other)
  Sender: FDA-Public Use
  Company Number: IT-RANBAXY-2011RR-41080

PATIENT
  Sex: Female

DRUGS (5)
  1. NIMESULIDE [Suspect]
  2. ESTRADIOL/GESTRODENE [Suspect]
  3. ESTRADIOL/LEVONOGESTREL [Suspect]
  4. IBUPROFEN [Suspect]
  5. PROGESTERONE [Suspect]
     Indication: FIBROMA

REACTIONS (1)
  - ERYTHEMA NODOSUM [None]
